FAERS Safety Report 6544784-5 (Version None)
Quarter: 2010Q1

REPORT INFORMATION
  Report Type: 
  Country: None (occurrence: None)
  Receive Date: 20100120
  Receipt Date: 20100120
  Transmission Date: 20100710
  Serious: No
  Sender: FDA-Public Use
  Company Number: None

PATIENT
  Age: 50 Year
  Sex: Female
  Weight: 122.4712 kg

DRUGS (2)
  1. ABILIFY [Suspect]
     Indication: DEPRESSION
     Dosage: 1 TABLET ONE TIME A DAY PO
     Route: 048
  2. ABILIFY [Suspect]
     Indication: SCHIZOAFFECTIVE DISORDER
     Dosage: 1 TABLET ONE TIME A DAY PO
     Route: 048

REACTIONS (2)
  - GRUNTING [None]
  - TOURETTE'S DISORDER [None]
